FAERS Safety Report 5128100-1 (Version None)
Quarter: 2006Q4

REPORT INFORMATION
  Report Type: 
  Country: None (occurrence: None)
  Receive Date: 20061003
  Receipt Date: 20060918
  Transmission Date: 20070319
  Serious: Yes (Hospitalization)
  Sender: FDA-Public Use
  Company Number: 200610280BBE

PATIENT
  Age: 31 Year
  Sex: Male

DRUGS (1)
  1. GAMIMUNE N 5% [Suspect]

REACTIONS (1)
  - DEEP VEIN THROMBOSIS [None]
